FAERS Safety Report 6770657-9 (Version None)
Quarter: 2010Q2

REPORT INFORMATION
  Report Type: 
  Country: None (occurrence: None)
  Receive Date: 20100615
  Receipt Date: 20100610
  Transmission Date: 20101027
  Serious: Yes (Other)
  Sender: FDA-Public Use
  Company Number: US-ALLERGAN-1007625US

PATIENT
  Age: 56 Year
  Sex: Female

DRUGS (1)
  1. LATISSE [Suspect]
     Indication: GROWTH OF EYELASHES
     Dosage: 1 GTT, QHS
     Route: 061
     Dates: start: 20100203

REACTIONS (4)
  - ABNORMAL SENSATION IN EYE [None]
  - EXCESSIVE EYE BLINKING [None]
  - KERATITIS [None]
  - VISION BLURRED [None]
